FAERS Safety Report 9962581 (Version 2)
Quarter: 2014Q1

REPORT INFORMATION
  Report Type: Report from Study
  Country: US (occurrence: US)
  Receive Date: 20140305
  Receipt Date: 20140305
  Transmission Date: 20141002
  Serious: No
  Sender: FDA-Public Use
  Company Number: US-ABBVIE-13P-163-1083552-00

PATIENT
  Age: 30 Year
  Sex: Female

DRUGS (7)
  1. HUMIRA [Suspect]
     Indication: PSORIASIS
     Dates: start: 20121218
  2. HUMIRA [Suspect]
     Dates: start: 20121225
  3. REQUIP [Concomitant]
     Indication: RESTLESS LEGS SYNDROME
     Dosage: HALF TABLET PER DAY
  4. IBUPROFEN [Concomitant]
     Indication: ARTHRALGIA
  5. ALEVE [Concomitant]
     Indication: ARTHRALGIA
  6. MUCINEX [Concomitant]
     Indication: PRODUCT USED FOR UNKNOWN INDICATION
  7. COLD REMEDIES [Concomitant]
     Indication: PRODUCT USED FOR UNKNOWN INDICATION

REACTIONS (9)
  - Wrong technique in drug usage process [Unknown]
  - Rash macular [Recovering/Resolving]
  - Pruritus allergic [Recovering/Resolving]
  - Nasopharyngitis [Recovering/Resolving]
  - Injection site bruising [Recovering/Resolving]
  - Injection site pain [Recovered/Resolved]
  - Injection site pain [Unknown]
  - Rash macular [Recovered/Resolved]
  - Rash pruritic [Recovered/Resolved]
